FAERS Safety Report 7069917-6 (Version None)
Quarter: 2010Q4

REPORT INFORMATION
  Report Type: 
  Country: None (occurrence: None)
  Receive Date: 20101028
  Receipt Date: 20100818
  Transmission Date: 20110411
  Serious: No
  Sender: FDA-Public Use
  Company Number: US-WYE-H16273910

PATIENT
  Age: 77 Year
  Sex: Female
  Weight: 67.65 kg

DRUGS (9)
  1. ADVIL [Suspect]
     Indication: PAIN
     Dosage: 2 TABS PRN
     Route: 048
     Dates: start: 20100501
  2. ADVIL [Suspect]
     Indication: ARTHRITIS
  3. OMEPRAZOLE [Concomitant]
  4. CALCIUM [Concomitant]
  5. TEMAZEPAM [Concomitant]
  6. TRAMADOL HCL [Concomitant]
  7. MULTI-VITAMINS [Concomitant]
  8. LEVOXYL [Concomitant]
  9. SIMVASTATIN [Concomitant]

REACTIONS (1)
  - DRUG EFFECT DECREASED [None]
